FAERS Safety Report 21286106 (Version 1)
Quarter: 2022Q3

REPORT INFORMATION
  Report Type: Spontaneous
  Country: US (occurrence: US)
  Receive Date: 20220902
  Receipt Date: 20220902
  Transmission Date: 20221027
  Serious: No
  Sender: FDA-Public Use
  Company Number: US-BAUSCH-BL-2022-021026

PATIENT
  Age: 9 Year
  Sex: Male
  Weight: 35.38 kg

DRUGS (2)
  1. IPRATROPIUM BROMIDE [Suspect]
     Active Substance: IPRATROPIUM BROMIDE
     Indication: Hypersensitivity
     Dosage: NOSE SPRAY, 0.06%, 42MCG PER SPRAY. HAS TAKEN FOR ABOUT 2 YEARS
     Route: 065
  2. IPRATROPIUM BROMIDE [Suspect]
     Active Substance: IPRATROPIUM BROMIDE
     Indication: Sinusitis

REACTIONS (3)
  - Asthma [Unknown]
  - Illness [Unknown]
  - Product dose omission issue [Unknown]
